FAERS Safety Report 8962970 (Version 2)
Quarter: 2013Q4

REPORT INFORMATION
  Report Type: Spontaneous
  Country: GB (occurrence: GB)
  Receive Date: 20121205
  Receipt Date: 20131007
  Transmission Date: 20140711
  Serious: Yes (Hospitalization)
  Sender: FDA-Public Use
  Company Number: GB-BANPHARM-20120384

PATIENT
  Age: 73 Year
  Sex: Male

DRUGS (3)
  1. IBUPROFEN UNKNOWN PRODUCT [Suspect]
     Indication: PAIN
     Dosage: 400 MG, TID,
     Route: 048
     Dates: end: 20031205
  2. TRAMADOL [Concomitant]
     Indication: PAIN
     Dosage: 50 MG, TID,
     Route: 048
  3. VENLAFAXINE [Concomitant]
     Indication: DEPRESSION
     Dosage: 75 MG, QD,
     Route: 048

REACTIONS (3)
  - Haematemesis [Recovering/Resolving]
  - Duodenal ulcer [Recovering/Resolving]
  - Hiatus hernia [Recovering/Resolving]
